FAERS Safety Report 5162281-9 (Version None)
Quarter: 2006Q4

REPORT INFORMATION
  Report Type: 
  Country: None (occurrence: None)
  Receive Date: 20060919
  Receipt Date: 20060802
  Transmission Date: 20070319
  Serious: No
  Sender: FDA-Public Use
  Company Number: 2006US001417

PATIENT
  Age: 85 Year
  Sex: Female
  Weight: 55.3 kg

DRUGS (1)
  1. VESICARE [Suspect]
     Indication: HYPERTONIC BLADDER
     Dates: start: 20060217, end: 20060228

REACTIONS (2)
  - HEAD DISCOMFORT [None]
  - INFLAMMATION [None]
